FAERS Safety Report 6163869-9 (Version None)
Quarter: 2009Q2

REPORT INFORMATION
  Report Type: 
  Country: None (occurrence: None)
  Receive Date: 20090422
  Receipt Date: 20090416
  Transmission Date: 20091009
  Serious: Yes (Hospitalization, Other)
  Sender: FDA-Public Use
  Company Number: SE-ABBOTT-08P-150-0468771-00

PATIENT
  Sex: Male
  Weight: 80 kg

DRUGS (6)
  1. HUMIRA [Suspect]
     Indication: CROHN'S DISEASE
     Route: 058
     Dates: start: 20080401, end: 20080801
  2. IMOVAN [Concomitant]
     Indication: INSOMNIA
     Route: 048
  3. ZANTAC [Concomitant]
     Indication: DRUG USE FOR UNKNOWN INDICATION
     Route: 048
  4. ENTOCORT EC [Concomitant]
     Indication: DRUG USE FOR UNKNOWN INDICATION
  5. BEHEPAN [Concomitant]
     Indication: DRUG USE FOR UNKNOWN INDICATION
  6. IMOVANE [Concomitant]
     Indication: DRUG USE FOR UNKNOWN INDICATION

REACTIONS (11)
  - ANGIOEDEMA [None]
  - ARTHRALGIA [None]
  - HEADACHE [None]
  - HYPERSENSITIVITY [None]
  - HYPOAESTHESIA [None]
  - LIP SWELLING [None]
  - PHARYNGEAL OEDEMA [None]
  - PSORIASIS [None]
  - SWELLING FACE [None]
  - URTICARIA [None]
  - VISUAL IMPAIRMENT [None]
